FAERS Safety Report 11128107 (Version 1)
Quarter: 2015Q2

REPORT INFORMATION
  Report Type: Spontaneous
  Country: US (occurrence: None)
  Receive Date: 20150520
  Receipt Date: 20150520
  Transmission Date: 20150821
  Serious: No
  Sender: FDA-Public Use
  Company Number: None

PATIENT
  Age: 62 Year
  Sex: Female
  Weight: 108.86 kg

DRUGS (16)
  1. L-THYOXINE [Concomitant]
  2. LANTUS [Concomitant]
     Active Substance: INSULIN GLARGINE
  3. ASPIRIN. [Concomitant]
     Active Substance: ASPIRIN
  4. FEROSEMIDE [Concomitant]
  5. CENTRUM SILVER VITAMIN [Concomitant]
  6. CRUSTOR [Concomitant]
  7. LUMIGAN DROPS [Concomitant]
  8. B6 [Concomitant]
     Active Substance: PYRIDOXINE HYDROCHLORIDE
  9. G;ICPSA,OME CJPMDRPOTOM [Concomitant]
  10. COQ10 [Concomitant]
     Active Substance: UBIDECARENONE
  11. FOLIC ACID. [Concomitant]
     Active Substance: FOLIC ACID
  12. CELECOXIB CAPS 100 MG MYLAN [Suspect]
     Active Substance: CELECOXIB
     Indication: ARTHRITIS
     Route: 048
     Dates: start: 20150313, end: 20150519
  13. LISINOPRIL. [Concomitant]
     Active Substance: LISINOPRIL
  14. CELEOXIB [Concomitant]
  15. CELECOXIB CAPS 100 MG MYLAN [Suspect]
     Active Substance: CELECOXIB
     Indication: PAIN IN EXTREMITY
     Route: 048
     Dates: start: 20150313, end: 20150519
  16. HUMALOG [Concomitant]
     Active Substance: INSULIN LISPRO

REACTIONS (4)
  - Arthralgia [None]
  - Condition aggravated [None]
  - Product substitution issue [None]
  - Joint stiffness [None]
